FAERS Safety Report 16466768 (Version 1)
Quarter: 2019Q2

REPORT INFORMATION
  Report Type: Spontaneous
  Country: US (occurrence: US)
  Receive Date: 20190623
  Receipt Date: 20190623
  Transmission Date: 20190711
  Serious: No
  Sender: FDA-Public Use
  Company Number: US-009507513-1906USA008417

PATIENT
  Sex: Female
  Weight: 80.27 kg

DRUGS (2)
  1. NEXPLANON [Suspect]
     Active Substance: ETONOGESTREL
     Dosage: UNK
     Route: 059
     Dates: start: 201604, end: 20190618
  2. NEXPLANON [Suspect]
     Active Substance: ETONOGESTREL
     Dosage: UNK
     Route: 059
     Dates: start: 20190618

REACTIONS (4)
  - Incorrect product administration duration [Unknown]
  - Hypoaesthesia [Unknown]
  - Implant site pain [Unknown]
  - Complication associated with device [Recovered/Resolved]
